FAERS Safety Report 4455543-1 (Version None)
Quarter: 2004Q3

REPORT INFORMATION
  Report Type: 
  Country: None (occurrence: None)
  Receive Date: 20040922
  Receipt Date: 20040913
  Transmission Date: 20050211
  Serious: Yes (Other)
  Sender: FDA-Public Use
  Company Number: PHRM2004FR02770

PATIENT
  Age: 37 Year
  Sex: Female
  Weight: 80 kg

DRUGS (5)
  1. LACTATED RINGER'S [Concomitant]
     Dosage: 1L / 6 HOURS
     Dates: start: 20040910
  2. EPHEDRINE SUL CAP [Suspect]
     Indication: SPINAL ANAESTHESIA
     Route: 042
     Dates: start: 20040910
  3. CEFAZOLIN SODIUM [Concomitant]
  4. SYNTOCINON [Suspect]
     Indication: CAESAREAN SECTION
     Dosage: 15 IU, ONCE/SINGLE
     Route: 042
     Dates: start: 20040910, end: 20040910
  5. SYNTOCINON [Suspect]
     Dosage: 15 IU / 6 HOURS
     Dates: start: 20040910

REACTIONS (2)
  - CHEST PAIN [None]
  - NECK PAIN [None]
